FAERS Safety Report 26053514 (Version 1)
Quarter: 2025Q4

REPORT INFORMATION
  Report Type: Report from Study
  Country: US (occurrence: US)
  Receive Date: 20251117
  Receipt Date: 20251117
  Transmission Date: 20260118
  Serious: Yes (Hospitalization, Other)
  Sender: Pyros Pharmaceuticals
  Company Number: US-PYROS PHARMACEUTICALS, INC-20250901250

PATIENT

DRUGS (2)
  1. VIGAFYDE [Suspect]
     Active Substance: VIGABATRIN
     Indication: Infantile spasms
     Dosage: 600 MG (6 ML) IN THE MORNING AND 1000 MG (10 ML) IN THE EVENING
     Dates: start: 20250801
  2. VIGAFYDE [Suspect]
     Active Substance: VIGABATRIN
     Dosage: 600 MG (6 ML) IN THE MORNING AND 1000 MG (10 ML) IN THE EVENING
     Dates: start: 20250801

REACTIONS (4)
  - Pneumonia aspiration [Unknown]
  - Nephrolithiasis [Unknown]
  - Pneumonia [Not Recovered/Not Resolved]
  - Rhinovirus infection [Not Recovered/Not Resolved]

NARRATIVE: CASE EVENT DATE: 20250101
